FAERS Safety Report 17632841 (Version 3)
Quarter: 2020Q4

REPORT INFORMATION
  Report Type: Spontaneous
  Country: US (occurrence: US)
  Receive Date: 20200406
  Receipt Date: 20201209
  Transmission Date: 20210113
  Serious: No
  Sender: FDA-Public Use
  Company Number: US-SA-2020SA085400

PATIENT

DRUGS (24)
  1. GABAPENTIN. [Concomitant]
     Active Substance: GABAPENTIN
  2. FUROSEMIDE. [Concomitant]
     Active Substance: FUROSEMIDE
  3. PRAVASTATIN SODIUM. [Concomitant]
     Active Substance: PRAVASTATIN SODIUM
  4. CITALOPRAM HYDROBROMIDE. [Concomitant]
     Active Substance: CITALOPRAM HYDROBROMIDE
  5. TEGRETOL [Concomitant]
     Active Substance: CARBAMAZEPINE
  6. DUREZOL [Concomitant]
     Active Substance: DIFLUPREDNATE
  7. AMLODIPINE BESYLATE. [Concomitant]
     Active Substance: AMLODIPINE BESYLATE
  8. POTASSIUM CHLORIDE [POTASSIUM CHLORIDE;RIBOFLAVIN SODIUM PHOSPHATE] [Concomitant]
  9. COMBIGAN [Concomitant]
     Active Substance: BRIMONIDINE TARTRATE\TIMOLOL MALEATE
  10. AZOPT [Concomitant]
     Active Substance: BRINZOLAMIDE
  11. TRAZODONE HYDROCHLORIDE. [Concomitant]
     Active Substance: TRAZODONE HYDROCHLORIDE
  12. NIFEDIPINE (II) [Concomitant]
  13. AUBAGIO [Suspect]
     Active Substance: TERIFLUNOMIDE
     Indication: PRODUCT USED FOR UNKNOWN INDICATION
     Dosage: 14 MG, QD
     Route: 048
  14. RANITIDINE HCL [Concomitant]
     Active Substance: RANITIDINE HYDROCHLORIDE
  15. CLONIDINE HCL [Concomitant]
     Active Substance: CLONIDINE HYDROCHLORIDE
  16. ASPIRIN [ACETYLSALICYLIC ACID] [Concomitant]
     Active Substance: ASPIRIN
  17. ENABLEX [Concomitant]
     Active Substance: DARIFENACIN HYDROBROMIDE
  18. MYRBETRIQ [Concomitant]
     Active Substance: MIRABEGRON
  19. CYMBALTA [Concomitant]
     Active Substance: DULOXETINE HYDROCHLORIDE
  20. LEVOTHYROXINE SODIUM. [Concomitant]
     Active Substance: LEVOTHYROXINE SODIUM
  21. TIMOLOL MALEATE EX [Concomitant]
     Active Substance: TIMOLOL MALEATE
  22. METHYLPRED [Concomitant]
     Active Substance: METHYLPREDNISOLONE
  23. QUETIAPINE FUMARATE. [Concomitant]
     Active Substance: QUETIAPINE FUMARATE
  24. OMEPRAZOLE. [Concomitant]
     Active Substance: OMEPRAZOLE

REACTIONS (2)
  - Hyperhidrosis [Unknown]
  - Product dose omission issue [Unknown]
